FAERS Safety Report 6589998-3 (Version None)
Quarter: 2010Q1

REPORT INFORMATION
  Report Type: 
  Country: None (occurrence: None)
  Receive Date: 20100219
  Receipt Date: 20100209
  Transmission Date: 20100710
  Serious: Yes (Hospitalization, Other)
  Sender: FDA-Public Use
  Company Number: PHHY2010DE07356

PATIENT
  Sex: Male

DRUGS (1)
  1. AREDIA [Suspect]
     Dosage: UNK
     Route: 042
     Dates: start: 20090101, end: 20100102

REACTIONS (2)
  - RENAL FAILURE [None]
  - STEM CELL TRANSPLANT [None]
